FAERS Safety Report 25808063 (Version 2)
Quarter: 2025Q3

REPORT INFORMATION
  Report Type: Report from Study
  Country: US (occurrence: US)
  Receive Date: 20250916
  Receipt Date: 20250920
  Transmission Date: 20251021
  Serious: Yes (Life-Threatening, Hospitalization)
  Sender: AMGEN
  Company Number: US-AMGEN-USASP2025181675

PATIENT
  Age: 16 Year
  Sex: Male

DRUGS (2)
  1. ACTIMMUNE [Suspect]
     Active Substance: INTERFERON GAMMA-1B
     Indication: Chronic granulomatous disease
     Dosage: 60 MICROGRAM, 3 TIMES/WK (STRENGTH: 100 MCG) (1 VIAL EVERY MONDAY, WEDNESDAY, FRIDAY)
     Route: 058
     Dates: start: 2016
  2. ACTIMMUNE [Suspect]
     Active Substance: INTERFERON GAMMA-1B
     Indication: Neutrophil function disorder

REACTIONS (5)
  - Biopsy lung [Unknown]
  - Procedural haemorrhage [Unknown]
  - Procedural complication [Unknown]
  - Pyrexia [Unknown]
  - Intercepted product storage error [Unknown]

NARRATIVE: CASE EVENT DATE: 20250909
